FAERS Safety Report 8402648-6 (Version None)
Quarter: 2012Q2

REPORT INFORMATION
  Report Type: 
  Country: None (occurrence: None)
  Receive Date: 20120601
  Receipt Date: 20120523
  Transmission Date: 20120825
  Serious: Yes (Hospitalization)
  Sender: FDA-Public Use
  Company Number: US-US-EMD SERONO, INC.-7022115

PATIENT
  Sex: Male

DRUGS (7)
  1. UNSPECIFIED MEDICATION [Concomitant]
     Indication: PREMEDICATION
  2. REBIF [Suspect]
     Indication: PRODUCT USED FOR UNKNOWN INDICATION
     Route: 058
     Dates: start: 20100830
  3. PERCOCET [Concomitant]
     Indication: PRODUCT USED FOR UNKNOWN INDICATION
  4. DIAZEPAM [Concomitant]
     Indication: PRODUCT USED FOR UNKNOWN INDICATION
  5. IMMUNE GLOBULIN (HUMAN) [Concomitant]
     Indication: PRODUCT USED FOR UNKNOWN INDICATION
  6. LYRICA [Concomitant]
     Indication: PRODUCT USED FOR UNKNOWN INDICATION
  7. BACLOFEN [Concomitant]
     Indication: PRODUCT USED FOR UNKNOWN INDICATION

REACTIONS (13)
  - PAIN IN EXTREMITY [None]
  - ASTHENIA [None]
  - IMMUNOGLOBULIN THERAPY [None]
  - PARAESTHESIA [None]
  - PAIN [None]
  - HYPOAESTHESIA [None]
  - HEADACHE [None]
  - RHINORRHOEA [None]
  - CHILLS [None]
  - FATIGUE [None]
  - CENTRAL NERVOUS SYSTEM LESION [None]
  - HEPATIC STEATOSIS [None]
  - SPINAL PAIN [None]
